FAERS Safety Report 7777525-4 (Version None)
Quarter: 2011Q3

REPORT INFORMATION
  Report Type: 
  Country: None (occurrence: None)
  Receive Date: 20110926
  Receipt Date: 20110912
  Transmission Date: 20111222
  Serious: Yes (Life-Threatening, Hospitalization, Other)
  Sender: FDA-Public Use
  Company Number: CA-ELI_LILLY_AND_COMPANY-CA201109002913

PATIENT
  Sex: Female

DRUGS (5)
  1. ZYPREXA [Suspect]
     Indication: DELUSION
     Dosage: 5 MG, UNK
     Dates: start: 19991124, end: 20060718
  2. BROMAZEPAM [Concomitant]
  3. TOPAMAX [Concomitant]
  4. LORAZEPAM [Concomitant]
  5. HORMONES [Concomitant]

REACTIONS (12)
  - RESPIRATORY FAILURE [None]
  - URINARY TRACT INFECTION [None]
  - LIVER FUNCTION TEST ABNORMAL [None]
  - HYPONATRAEMIA [None]
  - HEPATITIS [None]
  - COMA [None]
  - GASTROINTESTINAL HAEMORRHAGE [None]
  - INAPPROPRIATE ANTIDIURETIC HORMONE SECRETION [None]
  - TACHYCARDIA [None]
  - NORMOCHROMIC NORMOCYTIC ANAEMIA [None]
  - ENCEPHALOPATHY [None]
  - CONVULSION [None]
